FAERS Safety Report 25232894 (Version 1)
Quarter: 2025Q2

REPORT INFORMATION
  Report Type: Spontaneous
  Country: GB (occurrence: GB)
  Receive Date: 20250424
  Receipt Date: 20250424
  Transmission Date: 20250717
  Serious: Yes (Other)
  Sender: RANBAXY
  Company Number: GB-MHRA-MED-202504101112270270-PSJLZ

PATIENT
  Sex: Male

DRUGS (1)
  1. SERTRALINE [Suspect]
     Active Substance: SERTRALINE HYDROCHLORIDE
     Indication: Adverse drug reaction
     Route: 065

REACTIONS (4)
  - Musculoskeletal stiffness [Recovered/Resolved]
  - Palpitations [Recovered/Resolved]
  - Mydriasis [Recovered/Resolved]
  - Tremor [Recovered/Resolved]
